FAERS Safety Report 19014529 (Version 1)
Quarter: 2021Q1

REPORT INFORMATION
  Report Type: Report from Study
  Country: CA (occurrence: CA)
  Receive Date: 20210316
  Receipt Date: 20210316
  Transmission Date: 20210420
  Serious: Yes (Death, Hospitalization, Other)
  Sender: FDA-Public Use
  Company Number: CA-OTSUKA-2021_008676

PATIENT
  Sex: Male

DRUGS (1)
  1. ASTX727 [Suspect]
     Active Substance: CEDAZURIDINE\DECITABINE
     Indication: MYELODYSPLASTIC SYNDROME
     Dosage: 135 MG  (35 MG OF DECITABINE AND 100 MG OF CEDAZURIDINE)
     Route: 065
     Dates: start: 202101

REACTIONS (5)
  - Myelosuppression [Fatal]
  - Haemorrhage [Fatal]
  - Respiratory disorder [Fatal]
  - COVID-19 [Fatal]
  - Hepatic enzyme increased [Fatal]
